FAERS Safety Report 8310671-5 (Version None)
Quarter: 2012Q2

REPORT INFORMATION
  Report Type: 
  Country: None (occurrence: None)
  Receive Date: 20120425
  Receipt Date: 20120418
  Transmission Date: 20120825
  Serious: Yes (Other)
  Sender: FDA-Public Use
  Company Number: ES-ABBOTT-12P-144-0920933-00

PATIENT
  Age: 37 Year
  Sex: Male
  Weight: 89.6 kg

DRUGS (11)
  1. RISPERIDONE [Interacting]
     Dosage: 2 MG DAILY
     Route: 048
     Dates: start: 20110214, end: 20110401
  2. RISPERIDONE [Interacting]
     Indication: BIPOLAR I DISORDER
     Dosage: 3 MG DAILY
     Route: 048
     Dates: start: 20101221, end: 20110214
  3. ANTIDEPRESSANTS [Suspect]
     Indication: DEPRESSION
     Dosage: 25 MG DAILY
     Route: 048
     Dates: start: 20110305, end: 20110426
  4. VENLAFAXINE [Interacting]
     Dosage: 225 MEGABECQUEREL (S) DAILY
     Dates: start: 20110225, end: 20110401
  5. DEPAKENE [Suspect]
     Indication: PRODUCT USED FOR UNKNOWN INDICATION
     Route: 048
     Dates: start: 20101221
  6. MIRTAZAPINE [Interacting]
     Indication: DEPRESSION
     Dosage: 30 MG DAILY
     Route: 048
     Dates: start: 20110126, end: 20110225
  7. RISPERIDONE [Interacting]
     Dosage: 1 MG DAILY
     Route: 048
     Dates: start: 20110401, end: 20110601
  8. VENLAFAXINE [Interacting]
     Indication: DEPRESSION
     Dosage: 150 MG DAILY
     Route: 048
     Dates: start: 20110214, end: 20110225
  9. LORMETAZEPAM [Interacting]
     Indication: INSOMNIA
     Route: 048
     Dates: start: 20101221
  10. MIRTAZAPINE [Interacting]
     Dosage: 15 MG DAILY
     Route: 048
     Dates: start: 20110225, end: 20110305
  11. VENLAFAXINE HYDROCHLORIDE [Concomitant]
     Indication: PRODUCT USED FOR UNKNOWN INDICATION
     Dates: start: 20110401

REACTIONS (2)
  - ABNORMAL WEIGHT GAIN [None]
  - DRUG INTERACTION [None]
